FAERS Safety Report 10679695 (Version 2)
Quarter: 2015Q1

REPORT INFORMATION
  Report Type: Spontaneous
  Country: IT (occurrence: IT)
  Receive Date: 20141229
  Receipt Date: 20150304
  Transmission Date: 20150720
  Serious: Yes (Other)
  Sender: FDA-Public Use
  Company Number: IT-JNJFOC-20141214758

PATIENT
  Age: 38 Year
  Sex: Female

DRUGS (8)
  1. CETIRIZINE [Suspect]
     Active Substance: CETIRIZINE HYDROCHLORIDE
     Indication: INTENTIONAL SELF-INJURY
     Route: 048
     Dates: start: 20141113, end: 20141113
  2. DISSENTEN [Suspect]
     Active Substance: LOPERAMIDE HYDROCHLORIDE
     Indication: INTENTIONAL SELF-INJURY
     Dosage: 2 MG TABLETS
     Route: 048
     Dates: start: 20141113, end: 20141113
  3. BUSCOPAN [Suspect]
     Active Substance: BUTYLSCOPOLAMINE BROMIDE
     Indication: INTENTIONAL SELF-INJURY
     Dosage: 10 MG TABLET
     Route: 048
     Dates: start: 20141113, end: 20141113
  4. TACHIPIRINA [Suspect]
     Active Substance: ACETAMINOPHEN
     Indication: INTENTIONAL SELF-INJURY
     Dosage: 1000 MG TABLETS
     Route: 048
     Dates: start: 20141113, end: 20141113
  5. SPASMEX [Suspect]
     Active Substance: TROSPIUM CHLORIDE
     Indication: INTENTIONAL SELF-INJURY
     Dosage: 40 MG / 4 ML SOLUTION FOR INJECTION
     Route: 048
     Dates: start: 20141113, end: 20141113
  6. ACTIGRIP [Suspect]
     Active Substance: ACETAMINOPHEN\PSEUDOEPHEDRINE HYDROCHLORIDE\TRIPROLIDINE HYDROCHLORIDE
     Indication: INTENTIONAL SELF-INJURY
     Route: 048
     Dates: start: 20141113, end: 20141113
  7. CETIRIZINE [Suspect]
     Active Substance: CETIRIZINE HYDROCHLORIDE
     Route: 048
  8. NIMESULIDE [Suspect]
     Active Substance: NIMESULIDE
     Indication: INTENTIONAL SELF-INJURY
     Route: 048
     Dates: start: 20141113, end: 20141213

REACTIONS (2)
  - Drug abuse [Recovering/Resolving]
  - Intentional self-injury [Recovering/Resolving]

NARRATIVE: CASE EVENT DATE: 20141113
